FAERS Safety Report 22093651 (Version 5)
Quarter: 2023Q2

REPORT INFORMATION
  Report Type: Report from Study
  Country: KR (occurrence: None)
  Receive Date: 20230314
  Receipt Date: 20230428
  Transmission Date: 20230721
  Serious: Yes (Hospitalization)
  Sender: FDA-Public Use
  Company Number: KR-Eisai Inc (Eisai China)-EC-2023-135635

PATIENT
  Age: 58 Year
  Sex: Male
  Weight: 53.2 kg

DRUGS (10)
  1. E-7386 [Suspect]
     Active Substance: E-7386
     Indication: Colorectal cancer
     Route: 048
     Dates: start: 20230210, end: 20230227
  2. E-7386 [Suspect]
     Active Substance: E-7386
     Route: 048
     Dates: start: 20230309
  3. LENVATINIB [Suspect]
     Active Substance: LENVATINIB
     Indication: Colorectal cancer
     Route: 048
     Dates: start: 20230210, end: 20230301
  4. LENVATINIB [Suspect]
     Active Substance: LENVATINIB
     Route: 048
     Dates: start: 20230309
  5. RAMIPRIL [Concomitant]
     Active Substance: RAMIPRIL
     Indication: Hypertension
     Route: 048
     Dates: start: 20220419
  6. KYTRIL [Concomitant]
     Active Substance: GRANISETRON HYDROCHLORIDE
     Indication: Nausea
     Route: 048
     Dates: start: 20230210
  7. METOCLOPRAMIDE HYDROCHLORIDE [Concomitant]
     Active Substance: METOCLOPRAMIDE HYDROCHLORIDE
     Indication: Nausea
     Dosage: PRN
     Route: 048
     Dates: start: 20230210
  8. ZYPREXA [Concomitant]
     Active Substance: OLANZAPINE
     Indication: Nausea
     Dosage: PRN
     Route: 048
     Dates: start: 20230210
  9. CAL-D 3 [Concomitant]
     Indication: Nutritional supplementation
     Route: 048
     Dates: start: 20230210
  10. LOPAINE [Concomitant]
     Indication: Diarrhoea
     Dosage: PRN
     Route: 048
     Dates: start: 20230224

REACTIONS (1)
  - Nausea [Recovered/Resolved]

NARRATIVE: CASE EVENT DATE: 20230210
